FAERS Safety Report 5357170-0 (Version None)
Quarter: 2007Q2

REPORT INFORMATION
  Report Type: 
  Country: None (occurrence: None)
  Receive Date: 20070614
  Receipt Date: 20070608
  Transmission Date: 20071010
  Serious: Yes (Hospitalization, Other)
  Sender: FDA-Public Use
  Company Number: AU-AVENTIS-200715196GDDC

PATIENT
  Age: 75 Year
  Sex: Female

DRUGS (3)
  1. LANTUS [Suspect]
     Dosage: DOSE: VARIES
     Route: 058
     Dates: start: 20060901
  2. AUTOPEN INSULIN INJECTION PEN [Suspect]
  3. NOVORAPID [Concomitant]
     Dosage: DOSE: UNK
     Route: 058

REACTIONS (2)
  - HYPERGLYCAEMIA [None]
  - KNEE ARTHROPLASTY [None]
